FAERS Safety Report 19287830 (Version 1)
Quarter: 2021Q2

REPORT INFORMATION
  Report Type: Spontaneous
  Country: US (occurrence: US)
  Receive Date: 20210521
  Receipt Date: 20210521
  Transmission Date: 20210717
  Serious: Yes (Disabling, Other)
  Sender: FDA-Public Use
  Company Number: US-AMGEN-USASP2021073098

PATIENT
  Age: 78 Year
  Sex: Female

DRUGS (7)
  1. DUPILUMAB [Suspect]
     Active Substance: DUPILUMAB
     Dosage: THREE TIMES A WEEK
     Route: 058
     Dates: start: 2021
  2. PROLIA [Suspect]
     Active Substance: DENOSUMAB
     Indication: PRODUCT USED FOR UNKNOWN INDICATION
     Dosage: UNK MILLIGRAM
     Route: 065
     Dates: start: 2021
  3. DUPILUMAB [Suspect]
     Active Substance: DUPILUMAB
     Dosage: 600 MILLIGRAM ONCE
     Route: 058
     Dates: start: 20210130
  4. DUPILUMAB [Suspect]
     Active Substance: DUPILUMAB
     Dosage: 300 MILLIGRAM, Q2WK
     Route: 058
     Dates: start: 201912
  5. DUPILUMAB [Suspect]
     Active Substance: DUPILUMAB
     Dosage: 300 MILLIGRAM, Q2WK
     Route: 058
     Dates: start: 2021
  6. DUPILUMAB [Suspect]
     Active Substance: DUPILUMAB
     Dosage: 600 MILLIGRAM, ONE TIME DOSE
     Route: 058
     Dates: start: 20191202
  7. DUPILUMAB [Suspect]
     Active Substance: DUPILUMAB
     Indication: DERMATITIS ATOPIC
     Dosage: 600 MILLIGRAM ONCE
     Route: 058
     Dates: start: 201911

REACTIONS (9)
  - Rash papular [Unknown]
  - Fall [Unknown]
  - Varicose vein [Unknown]
  - Gait disturbance [Unknown]
  - Memory impairment [Not Recovered/Not Resolved]
  - Macular degeneration [Unknown]
  - Angiopathy [Unknown]
  - Poor peripheral circulation [Unknown]
  - Intervertebral disc protrusion [Unknown]

NARRATIVE: CASE EVENT DATE: 2021
